FAERS Safety Report 11213035 (Version 1)
Quarter: 2015Q2

REPORT INFORMATION
  Report Type: Spontaneous
  Country: US (occurrence: US)
  Receive Date: 20150623
  Receipt Date: 20150623
  Transmission Date: 20150821
  Serious: No
  Sender: FDA-Public Use
  Company Number: US-BAYER-2015-361556

PATIENT
  Age: 63 Year
  Sex: Female
  Weight: 70 kg

DRUGS (3)
  1. VITAMIN D [Concomitant]
     Active Substance: CHOLECALCIFEROL
  2. OXYTROL FOR WOMEN [Suspect]
     Active Substance: OXYBUTYNIN
     Indication: HYPERTONIC BLADDER
     Dosage: 1 PATCH EVERY 4 DAY
     Route: 061
     Dates: start: 20150530, end: 20150618
  3. OMEGA 3 [Concomitant]
     Active Substance: OMEGA-3 FATTY ACIDS

REACTIONS (1)
  - Skin irritation [Unknown]

NARRATIVE: CASE EVENT DATE: 20150602
